FAERS Safety Report 11004414 (Version 3)
Quarter: 2015Q3

REPORT INFORMATION
  Report Type: Spontaneous
  Country: US (occurrence: US)
  Receive Date: 20150409
  Receipt Date: 20150812
  Transmission Date: 20151125
  Serious: No
  Sender: FDA-Public Use
  Company Number: US-ASTRAZENECA-2015SE32085

PATIENT
  Age: 23716 Day
  Sex: Female
  Weight: 62.6 kg

DRUGS (5)
  1. LYNPARZA [Suspect]
     Active Substance: OLAPARIB
     Indication: OVARIAN CANCER
     Route: 048
     Dates: start: 20150313
  2. PRILOSEC [Suspect]
     Active Substance: OMEPRAZOLE MAGNESIUM
     Indication: ULCER
     Route: 048
     Dates: start: 201312
  3. REMERON [Concomitant]
     Active Substance: MIRTAZAPINE
     Indication: DEPRESSION
     Dates: start: 2013
  4. ZOFRAN [Concomitant]
     Active Substance: ONDANSETRON HYDROCHLORIDE
     Indication: NAUSEA
     Dates: start: 2012
  5. ATIVAN [Concomitant]
     Active Substance: LORAZEPAM
     Indication: ANXIETY
     Dates: start: 201203

REACTIONS (15)
  - Pain [Unknown]
  - Dysgeusia [Unknown]
  - Abdominal pain upper [Unknown]
  - Constipation [Unknown]
  - Aphonia [Unknown]
  - Dehydration [Unknown]
  - Feeling abnormal [Unknown]
  - Dry mouth [Unknown]
  - Fatigue [Unknown]
  - Vomiting [Unknown]
  - Decreased appetite [Unknown]
  - Rhinorrhoea [Unknown]
  - Cough [Unknown]
  - Abdominal pain lower [Unknown]
  - Nausea [Unknown]

NARRATIVE: CASE EVENT DATE: 20150327
